FAERS Safety Report 5603777-2 (Version None)
Quarter: 2008Q1

REPORT INFORMATION
  Report Type: 
  Country: None (occurrence: None)
  Receive Date: 20080122
  Receipt Date: 20080107
  Transmission Date: 20080703
  Serious: Yes (Death)
  Sender: FDA-Public Use
  Company Number: IMP_03303_2008

PATIENT
  Age: 63 Year
  Sex: Male

DRUGS (1)
  1. TERBUTALINE SULFATE [Suspect]
     Indication: DRUG USE FOR UNKNOWN INDICATION
     Dosage: (DF OTHER)
     Route: 050

REACTIONS (4)
  - CARDIAC ARREST [None]
  - MEDICATION ERROR [None]
  - POISONING [None]
  - RESPIRATORY ARREST [None]
